FAERS Safety Report 18286862 (Version 2)
Quarter: 2021Q2

REPORT INFORMATION
  Report Type: Spontaneous
  Country: US (occurrence: US)
  Receive Date: 20200921
  Receipt Date: 20210611
  Transmission Date: 20210717
  Serious: No
  Sender: FDA-Public Use
  Company Number: US-AMGEN-USASP2020150880

PATIENT
  Age: 85 Year
  Sex: Male

DRUGS (2)
  1. TALIMOGENE LAHERPAREPVEC [Suspect]
     Active Substance: TALIMOGENE LAHERPAREPVEC
     Indication: SKIN SQUAMOUS CELL CARCINOMA METASTATIC
     Dosage: 2 MILLILITER OF 10^6 PFU/ML (TWO ROUNDS, ONE MONTH APART)
     Route: 026
  2. MYCOPHENOLATE MOFETIL. [Concomitant]
     Active Substance: MYCOPHENOLATE MOFETIL
     Dosage: 250 MILLIGRAM, BID

REACTIONS (2)
  - Off label use [Unknown]
  - Mandibular mass [Recovered/Resolved]
